FAERS Safety Report 18429172 (Version 2)
Quarter: 2020Q4

REPORT INFORMATION
  Report Type: Spontaneous
  Country: US (occurrence: US)
  Receive Date: 20201026
  Receipt Date: 20201201
  Transmission Date: 20210114
  Serious: No
  Sender: FDA-Public Use
  Company Number: US-PFIZER INC-2020377841

PATIENT
  Age: 41 Year
  Sex: Female
  Weight: 81.63 kg

DRUGS (5)
  1. MELATONIN [Concomitant]
     Active Substance: MELATONIN
     Dosage: UNK (100 % POWDER)
  2. MAGNESIUM [Concomitant]
     Active Substance: MAGNESIUM
     Dosage: 30 MG
  3. SUTENT [Suspect]
     Active Substance: SUNITINIB MALATE
     Indication: NEUROENDOCRINE TUMOUR
     Dosage: 37.5 MG, DAILY
     Route: 048
     Dates: start: 20200118, end: 2020
  4. SUTENT [Suspect]
     Active Substance: SUNITINIB MALATE
     Dosage: 25 MG, 1X/DAY
     Route: 048
     Dates: start: 20200911, end: 2020
  5. SUTENT [Suspect]
     Active Substance: SUNITINIB MALATE
     Dosage: 25 MG, DAILY
     Route: 048
     Dates: end: 202011

REACTIONS (7)
  - Proteinuria [Unknown]
  - Headache [Not Recovered/Not Resolved]
  - Haematuria [Unknown]
  - Diarrhoea [Not Recovered/Not Resolved]
  - Blood triglycerides increased [Unknown]
  - Fatigue [Not Recovered/Not Resolved]
  - Taste disorder [Not Recovered/Not Resolved]

NARRATIVE: CASE EVENT DATE: 2020
